FAERS Safety Report 6562438-6 (Version None)
Quarter: 2010Q1

REPORT INFORMATION
  Report Type: 
  Country: None (occurrence: None)
  Receive Date: 20100130
  Receipt Date: 20091110
  Transmission Date: 20100710
  Serious: Yes (Other)
  Sender: FDA-Public Use
  Company Number: US-ABBOTT-09P-163-0607956-00

PATIENT
  Sex: Female

DRUGS (7)
  1. HUMIRA [Suspect]
     Indication: PSORIATIC ARTHROPATHY
     Route: 058
     Dates: start: 20040101
  2. PLAQUENIL [Concomitant]
     Indication: DRUG USE FOR UNKNOWN INDICATION
  3. METHOTREXATE [Concomitant]
     Indication: DRUG USE FOR UNKNOWN INDICATION
  4. PREVACID [Concomitant]
     Indication: DRUG USE FOR UNKNOWN INDICATION
  5. NAPROXEN [Concomitant]
     Indication: DRUG USE FOR UNKNOWN INDICATION
  6. DARVOCET [Concomitant]
     Indication: DRUG USE FOR UNKNOWN INDICATION
  7. HYDROCODONE [Concomitant]
     Indication: DRUG USE FOR UNKNOWN INDICATION

REACTIONS (1)
  - THYROID CANCER [None]
